FAERS Safety Report 16683165 (Version 1)
Quarter: 2019Q3

REPORT INFORMATION
  Report Type: Spontaneous
  Country: GB (occurrence: GB)
  Receive Date: 20190808
  Receipt Date: 20190808
  Transmission Date: 20191004
  Serious: Yes (Other)
  Sender: FDA-Public Use
  Company Number: GB-TEVA-2019-GB-1090103

PATIENT
  Age: 80 Year
  Sex: Female
  Weight: 66 kg

DRUGS (14)
  1. NYSTAN [Concomitant]
     Active Substance: NYSTATIN
     Dosage: 4GTT
     Dates: start: 20190619, end: 20190626
  2. ZOPICLONE [Concomitant]
     Active Substance: ZOPICLONE
     Dosage: NIGHT.1 DOSAGE FORMS
     Dates: start: 20190213
  3. CHLORPHENAMINE [Concomitant]
     Active Substance: CHLORPHENIRAMINE MALEATE
     Dosage: EVERY 4-6 HOURS.1 DOSAGE FORMS
     Dates: start: 20190626
  4. VAGIFEM [Concomitant]
     Active Substance: ESTRADIOL
     Dosage: AS DIRECTED.2 DOSAGE FORMS
     Dates: start: 20181231
  5. CANDESARTAN. [Concomitant]
     Active Substance: CANDESARTAN
     Indication: BLOOD PRESSURE MEASUREMENT
     Dosage: 1 DOSAGE FORMS
     Dates: start: 20181231
  6. TIMOLOL. [Concomitant]
     Active Substance: TIMOLOL
     Dosage: RIGHT EYE.2 DOSAGE FORMS
     Route: 050
     Dates: start: 20181231
  7. ADCAL [Concomitant]
     Dosage: 2 DOSAGE FORMS
     Dates: start: 20181231
  8. BETAHISTINE [Concomitant]
     Active Substance: BETAHISTINE
     Indication: DIZZINESS
     Dosage: 1 ONCE OR TWICE DAILY.
     Dates: start: 20181231
  9. MIRTAZAPINE. [Suspect]
     Active Substance: MIRTAZAPINE
     Dosage: EVERY NIGHT TIME.15MG
     Dates: start: 20190605
  10. AMOXICILLIN. [Concomitant]
     Active Substance: AMOXICILLIN
     Dosage: 3 DOSAGE FORMS
     Dates: start: 20190626
  11. NITROFURANTOIN. [Concomitant]
     Active Substance: NITROFURANTOIN
     Dosage: 2 DOSAGE FORMS
     Dates: start: 20190619, end: 20190622
  12. MIRABEGRON [Concomitant]
     Active Substance: MIRABEGRON
     Dosage: 1 DOSAGE FORMS
     Dates: start: 20181231
  13. HYLO-FORTE [Concomitant]
     Active Substance: HYALURONATE SODIUM
     Dosage: 1-2 HOURLY DURING THE DAY AS PER SPECIALIST.
     Dates: start: 20181231, end: 20190605
  14. LORATADINE. [Concomitant]
     Active Substance: LORATADINE
     Dosage: 1DOSAGE FORMS
     Dates: start: 20190626

REACTIONS (3)
  - Alopecia [Unknown]
  - Dizziness postural [Recovering/Resolving]
  - Rash erythematous [Recovering/Resolving]
